FAERS Safety Report 9780084 (Version 1)
Quarter: 2013Q4

REPORT INFORMATION
  Report Type: Report from Study
  Country: NL (occurrence: NL)
  Receive Date: 20131223
  Receipt Date: 20131223
  Transmission Date: 20140711
  Serious: Yes (Other)
  Sender: FDA-Public Use
  Company Number: NL-BAXTER-2013BAX051810

PATIENT
  Sex: 0

DRUGS (3)
  1. SEVOFLURANE BAXTER, VLOEISTOF VOOR INHALATIEDAMP 100 % (V/V) [Suspect]
     Indication: INHALATION THERAPY
     Route: 055
  2. SEVOFLURANE BAXTER, VLOEISTOF VOOR INHALATIEDAMP 100 % (V/V) [Suspect]
     Indication: ASTHMA
  3. SEVOFLURANE BAXTER, VLOEISTOF VOOR INHALATIEDAMP 100 % (V/V) [Suspect]
     Indication: OFF LABEL USE

REACTIONS (1)
  - No therapeutic response [Recovered/Resolved]
